FAERS Safety Report 24751114 (Version 1)
Quarter: 2024Q4

REPORT INFORMATION
  Report Type: Spontaneous
  Country: FR (occurrence: FR)
  Receive Date: 20241219
  Receipt Date: 20241219
  Transmission Date: 20250115
  Serious: Yes (Death)
  Sender: BRAEBURN PHARMACEUTICALS
  Company Number: None

PATIENT
  Age: 60 Year
  Sex: Male
  Weight: 56 kg

DRUGS (11)
  1. BUPRENORPHINE [Suspect]
     Active Substance: BUPRENORPHINE
     Indication: Drug dependence
     Dosage: 1 DOSAGE FORM, 4W
     Route: 058
     Dates: start: 20240116, end: 20241031
  2. TROSPIUM CHLORIDE [Suspect]
     Active Substance: TROSPIUM CHLORIDE
     Indication: Incontinence
     Dosage: 20 MILLIGRAM, Q12H
     Route: 048
     Dates: start: 20240101
  3. AMITRIPTYLINE HYDROCHLORIDE [Suspect]
     Active Substance: AMITRIPTYLINE HYDROCHLORIDE
     Indication: Neuralgia
     Dosage: 5 MILLIGRAM, QD
     Route: 048
     Dates: start: 20240131
  4. PRAZEPAM [Concomitant]
     Active Substance: PRAZEPAM
     Indication: Product used for unknown indication
     Dosage: 70 MILLIGRAM, QD
     Route: 048
     Dates: start: 20230227, end: 20240702
  5. PRAZEPAM [Concomitant]
     Active Substance: PRAZEPAM
     Dosage: 40 MILLIGRAM, QD
     Route: 048
     Dates: start: 20240715
  6. GABAPENTIN [Concomitant]
     Active Substance: GABAPENTIN
     Indication: Neuralgia
     Dosage: 900 MILLIGRAM, QD
     Route: 048
     Dates: start: 202302
  7. VALPROMIDE [Concomitant]
     Active Substance: VALPROMIDE
     Indication: Emotional disorder
     Dosage: 900 MILLIGRAM, QD
     Route: 048
     Dates: start: 20230227
  8. POLYETHYLENE GLYCOL 4000 [Concomitant]
     Active Substance: POLYETHYLENE GLYCOL 4000
     Indication: Constipation
     Dosage: 20 GRAM, QD
     Route: 048
     Dates: start: 2024
  9. NICORETTESKIN [Concomitant]
     Indication: Product used for unknown indication
     Dosage: 25 MILLIGRAM, QD
     Route: 062
  10. NICORETTE [Concomitant]
     Active Substance: NICOTINE
     Indication: Product used for unknown indication
     Dosage: 1 UNIT EVERY 3 HOURS, IF REQUESTED, CHEW THEGUM A FIRST TIME AND KEEP IT AGAINST THE CHEEK FOR 10 MI
     Route: 048
  11. LIDOCAINE [Concomitant]
     Active Substance: LIDOCAINE
     Indication: Product used for unknown indication
     Dosage: 1 PATCH, 12 HOURS PER DAY
     Route: 065

REACTIONS (1)
  - Ileus paralytic [Fatal]

NARRATIVE: CASE EVENT DATE: 20241102
